FAERS Safety Report 20542235 (Version 1)
Quarter: 2022Q1

REPORT INFORMATION
  Report Type: Spontaneous
  Country: RU (occurrence: RU)
  Receive Date: 20220302
  Receipt Date: 20220302
  Transmission Date: 20220423
  Serious: Yes (Other)
  Sender: FDA-Public Use
  Company Number: RU-ABBVIE-22K-251-4298441-00

PATIENT
  Age: 24 Year
  Sex: Male
  Weight: 57 kg

DRUGS (3)
  1. VALPROATE SODIUM [Suspect]
     Active Substance: VALPROATE SODIUM
     Indication: Epilepsy
     Dosage: 2 TABLET 3 TIMES A DAY
     Route: 048
     Dates: start: 2018, end: 2018
  2. VALPROATE SODIUM [Suspect]
     Active Substance: VALPROATE SODIUM
     Dosage: 1TABLET  3 TIMES A DAY
     Route: 048
     Dates: start: 2018, end: 2018
  3. VALPROATE SODIUM [Suspect]
     Active Substance: VALPROATE SODIUM
     Dosage: 1 TABLET 3 TIMES A DAY
     Route: 048
     Dates: start: 2018

REACTIONS (4)
  - Epilepsy [Recovered/Resolved]
  - Epilepsy [Recovered/Resolved]
  - Fall [Recovered/Resolved]
  - Product counterfeit [Unknown]

NARRATIVE: CASE EVENT DATE: 20180101
